FAERS Safety Report 18270676 (Version 1)
Quarter: 2020Q3

REPORT INFORMATION
  Report Type: Spontaneous
  Country: CN (occurrence: CN)
  Receive Date: 20200915
  Receipt Date: 20200915
  Transmission Date: 20201103
  Serious: Yes (Hospitalization)
  Sender: FDA-Public Use
  Company Number: CN-CELGENEUS-CHN-20200901360

PATIENT
  Age: 64 Year
  Sex: Male
  Weight: 40 kg

DRUGS (5)
  1. ABRAXANE [Suspect]
     Active Substance: PACLITAXEL
     Indication: GASTRIC CANCER
     Dosage: 172 MILLIGRAM
     Route: 041
     Dates: start: 20200822, end: 20200822
  2. ABRAXANE [Suspect]
     Active Substance: PACLITAXEL
     Indication: OFF LABEL USE
  3. OXALIPLATIN. [Concomitant]
     Active Substance: OXALIPLATIN
     Indication: GASTRIC CANCER
     Dosage: 120 MILLIGRAM
     Route: 041
     Dates: start: 20200816, end: 20200816
  4. TEGAFUR GIMERACIL OTERACIL POTASSIUM [Concomitant]
     Indication: GASTRIC CANCER
     Dosage: 80 MILLIGRAM
     Route: 048
     Dates: start: 20200815, end: 20200825
  5. SODIUM CHLORIDE. [Concomitant]
     Active Substance: SODIUM CHLORIDE
     Indication: PRODUCT USED FOR UNKNOWN INDICATION
     Dosage: 100 MILLILITER
     Route: 041
     Dates: start: 20200816, end: 20200816

REACTIONS (1)
  - Myelosuppression [Recovering/Resolving]

NARRATIVE: CASE EVENT DATE: 20200824
